FAERS Safety Report 20122761 (Version 3)
Quarter: 2021Q4

REPORT INFORMATION
  Report Type: Spontaneous
  Country: CZ (occurrence: CZ)
  Receive Date: 20211128
  Receipt Date: 20211229
  Transmission Date: 20220303
  Serious: Yes (Other)
  Sender: FDA-Public Use
  Company Number: CZ-Orion Corporation ORION PHARMA-MARE2021-0082

PATIENT
  Age: 73 Year
  Sex: Male

DRUGS (9)
  1. ATORVASTATIN [Suspect]
     Active Substance: ATORVASTATIN
     Indication: Dyslipidaemia
     Dosage: 10 MILLIGRAM, ONCE A DAY, IN IN MORNING
     Route: 065
  2. ATORVASTATIN [Suspect]
     Active Substance: ATORVASTATIN
     Dosage: 10 MILLIGRAM, ONCE A DAY, IN IN EVENING
     Route: 065
  3. METFORMIN [Suspect]
     Active Substance: METFORMIN HYDROCHLORIDE
     Indication: Type 2 diabetes mellitus
     Dosage: 1700 MILLIGRAM, ONCE A DAY (850 MG 0.5 DAY)
     Route: 065
  4. METOPROLOL [Suspect]
     Active Substance: METOPROLOL
     Indication: Hypertension
     Dosage: 100 MILLIGRAM, ONCE A DAY (100 MILLIGRAM (IN THE MORNING))
     Route: 065
  5. WARFARIN [Suspect]
     Active Substance: WARFARIN
     Indication: Atrial fibrillation
     Dosage: 10 MILLIGRAM, ONCE A DAY (FOR ATLEAST 3 YEARS)
     Route: 065
  6. WARFARIN [Suspect]
     Active Substance: WARFARIN
     Indication: Sinus arrhythmia
  7. LINAGLIPTIN [Suspect]
     Active Substance: LINAGLIPTIN
     Indication: Type 2 diabetes mellitus
     Dosage: 5 MILLIGRAM, ONCE A DAY (5 MILLIGRAM (IN THE MORNING))
     Route: 065
  8. INDAPAMIDE\PERINDOPRIL ARGININE [Suspect]
     Active Substance: INDAPAMIDE\PERINDOPRIL ARGININE
     Indication: Hypertension
     Dosage: 1 DOSAGE FORM, ONCE A DAY (1 DOSAGE FORM (5/1.25 MG)1 TABLET IN THE MORNING))
     Route: 065
  9. AMLODIPINE BESILATE;INDAPAMIDE;PERINDOPRIL ARGININE [Concomitant]
     Indication: Product used for unknown indication
     Dosage: 5/1.25  MG IN  THE  MORNING
     Route: 065

REACTIONS (17)
  - Anticoagulant-related nephropathy [Recovering/Resolving]
  - Nephropathy [Unknown]
  - Diabetic nephropathy [Unknown]
  - Melaena [Recovering/Resolving]
  - Nephropathy toxic [Unknown]
  - Anaemia [Recovering/Resolving]
  - Metabolic acidosis [Recovering/Resolving]
  - Blood lactic acid increased [Recovering/Resolving]
  - Blood creatinine increased [Unknown]
  - International normalised ratio increased [Unknown]
  - Proteinuria [Unknown]
  - Abdominal pain upper [Unknown]
  - Heart rate irregular [Unknown]
  - Dyspnoea [Unknown]
  - Haematuria [Unknown]
  - Blood pressure decreased [Unknown]
  - Asthenia [Unknown]

NARRATIVE: CASE EVENT DATE: 20201101
